FAERS Safety Report 7726400-X (Version None)
Quarter: 2011Q3

REPORT INFORMATION
  Report Type: 
  Country: None (occurrence: None)
  Receive Date: 20110831
  Receipt Date: 20091207
  Transmission Date: 20111222
  Serious: Yes (Other)
  Sender: FDA-Public Use
  Company Number: SIM_00091_2011

PATIENT
  Sex: Female

DRUGS (1)
  1. STYE EYE RELIEF (HOMEOPATHIC) [Suspect]
     Indication: HORDEOLUM
     Dosage: (DF OPHTHALMIC)
     Route: 047
     Dates: start: 20091110, end: 20091101

REACTIONS (1)
  - CHEMICAL BURNS OF EYE [None]
